FAERS Safety Report 10073800 (Version 1)
Quarter: 2014Q2

REPORT INFORMATION
  Report Type: Spontaneous
  Country: US (occurrence: US)
  Receive Date: 20140411
  Receipt Date: 20140411
  Transmission Date: 20141212
  Serious: Yes (Other)
  Sender: FDA-Public Use
  Company Number: PHHY2014US044219

PATIENT
  Sex: 0

DRUGS (7)
  1. SENNOSIDE A+B [Suspect]
     Route: 064
  2. BETAMETHASONE [Suspect]
     Route: 064
  3. MAGNESIUM SULFATE [Suspect]
     Route: 064
  4. NIFEDIPINE [Suspect]
     Route: 064
  5. INDOCIN [Suspect]
     Route: 064
  6. COLACE [Suspect]
     Route: 064
  7. BISACODYL [Suspect]
     Route: 064

REACTIONS (3)
  - Premature baby [Unknown]
  - Apgar score low [Unknown]
  - Foetal exposure during pregnancy [Unknown]
